FAERS Safety Report 23894249 (Version 1)
Quarter: 2024Q2

REPORT INFORMATION
  Report Type: Spontaneous
  Country: NL (occurrence: NL)
  Receive Date: 20240524
  Receipt Date: 20240524
  Transmission Date: 20240716
  Serious: Yes (Death, Life-Threatening, Hospitalization, Other)
  Sender: FDA-Public Use
  Company Number: NL-Reliance-000398

PATIENT
  Age: 65 Year
  Sex: Female

DRUGS (2)
  1. CAPECITABINE [Suspect]
     Active Substance: CAPECITABINE
     Indication: HER2 negative breast cancer
     Dosage: 100% DOSE OF CAPECITABINE (1,000 MG/M2) TWICE DAILY FOR 2 WEEKS FOLLOWED BY A 7-DAY REST PERIOD.
  2. ACETAZOLAMIDE [Concomitant]
     Active Substance: ACETAZOLAMIDE
     Indication: Intracranial pressure increased
     Dosage: 125 MG TWICE DAILY

REACTIONS (6)
  - Toxicity to various agents [Fatal]
  - Stomatitis [Fatal]
  - Diarrhoea [Fatal]
  - Hyponatraemia [Fatal]
  - Thrombocytopenia [Fatal]
  - Neutropenia [Fatal]
